FAERS Safety Report 10880836 (Version 1)
Quarter: 2015Q1

REPORT INFORMATION
  Report Type: Spontaneous
  Country: DE (occurrence: DE)
  Receive Date: 20150303
  Receipt Date: 20150303
  Transmission Date: 20150721
  Serious: Yes (Other)
  Sender: FDA-Public Use
  Company Number: DE-BIOGENIDEC-2015BI022593

PATIENT
  Sex: Female
  Weight: 53 kg

DRUGS (1)
  1. PLEGRIDY [Suspect]
     Active Substance: PEGINTERFERON BETA-1A
     Indication: MULTIPLE SCLEROSIS
     Route: 058
     Dates: start: 20141103, end: 20150213

REACTIONS (5)
  - Injection site swelling [Unknown]
  - Aggression [Unknown]
  - Peripheral venous disease [Unknown]
  - Mental disorder [Unknown]
  - Lymphadenopathy [Unknown]
